FAERS Safety Report 4930107-1 (Version None)
Quarter: 2006Q1

REPORT INFORMATION
  Report Type: 
  Country: None (occurrence: None)
  Receive Date: 20060302
  Receipt Date: 20060125
  Transmission Date: 20060701
  Serious: Yes (Other)
  Sender: FDA-Public Use
  Company Number: 2006AP00417

PATIENT
  Age: 9326 Day
  Sex: Female
  Weight: 60 kg

DRUGS (17)
  1. SEROQUEL [Suspect]
     Indication: PSYCHOTIC DISORDER
     Dosage: 50 MG TITRATED TO 75 MG, TITRATED TO 100 MG
     Route: 048
     Dates: start: 20050801, end: 20050901
  2. SEROQUEL [Suspect]
     Route: 048
     Dates: start: 20050902, end: 20051003
  3. SEROQUEL [Suspect]
     Route: 048
     Dates: start: 20051004, end: 20051109
  4. SEROQUEL [Suspect]
     Route: 048
     Dates: start: 20051110, end: 20051127
  5. SEROQUEL [Suspect]
     Dosage: TITRATED DOWN DUE TO DAYTIME SEDATION AND DIZZINESS
     Route: 048
     Dates: start: 20051128, end: 20051207
  6. SEROQUEL [Suspect]
     Dosage: TITRATED DOWN DUE TO SEDATION
     Route: 048
     Dates: start: 20051208, end: 20051211
  7. SEROQUEL [Suspect]
     Route: 048
     Dates: start: 20051212, end: 20051224
  8. DEPAKENE [Concomitant]
     Indication: AFFECTIVE DISORDER
     Dosage: 400MG DAILY INCREASED TO 1000 MG EVERY DAY
     Route: 048
     Dates: start: 20020226, end: 20050609
  9. DEPAKENE [Concomitant]
     Route: 048
     Dates: start: 20050610, end: 20051207
  10. DEPAKENE [Concomitant]
     Route: 048
     Dates: start: 20051208, end: 20051211
  11. DEPAKENE [Concomitant]
     Route: 048
     Dates: start: 20051212, end: 20051213
  12. DEPAKENE [Concomitant]
     Route: 048
     Dates: start: 20051213, end: 20051222
  13. DEPAKENE [Concomitant]
     Route: 048
     Dates: start: 20051223
  14. DEPAKENE [Concomitant]
     Route: 048
  15. AKINETON [Concomitant]
     Indication: EXTRAPYRAMIDAL DISORDER
     Dosage: 4MG TO 6MG DAILY
     Route: 048
     Dates: start: 20000101
  16. EURODIN [Concomitant]
     Indication: INSOMNIA
     Route: 048
     Dates: start: 20000101
  17. SENNOSIDE [Concomitant]
     Indication: CONSTIPATION
     Route: 048
     Dates: start: 20000101

REACTIONS (3)
  - DIZZINESS [None]
  - PANCYTOPENIA [None]
  - SOMNOLENCE [None]
